FAERS Safety Report 4959096-0 (Version None)
Quarter: 2006Q1

REPORT INFORMATION
  Report Type: 
  Country: None (occurrence: None)
  Receive Date: 20060324
  Receipt Date: 20060313
  Transmission Date: 20060701
  Serious: Yes (Other)
  Sender: FDA-Public Use
  Company Number: US200602003879

PATIENT
  Age: 54 Year
  Sex: Female
  Weight: 87.4 kg

DRUGS (12)
  1. GEMZAR [Suspect]
     Indication: BREAST CANCER METASTATIC
     Dosage: SEE IMAGE
     Route: 042
     Dates: start: 20050401
  2. GEMZAR [Suspect]
     Indication: BREAST CANCER METASTATIC
     Dosage: SEE IMAGE
     Route: 042
     Dates: start: 20060310
  3. TAXOTERE [Concomitant]
  4. ZOLOFT [Concomitant]
  5. PRILOSEC [Concomitant]
  6. CALCIUM WITH VITAMIN D (CALCIUM PHOSPHATE, CALCIUM SODIUM LACTATE, ERG [Concomitant]
  7. GLUCOSAMINE [Concomitant]
  8. ATIVAN [Concomitant]
  9. VITAMIN B COMPLEX (BECOTIN) [Concomitant]
  10. FERROUS SULPHATE (FERROUS SULFATE) [Concomitant]
  11. POTASSIUM CHLORIDE [Concomitant]
  12. DARVOCET-N 100 [Concomitant]

REACTIONS (10)
  - CONDITION AGGRAVATED [None]
  - CONVULSION [None]
  - DYSPNOEA [None]
  - GENERALISED OEDEMA [None]
  - HAEMATOCRIT DECREASED [None]
  - HAEMOGLOBIN DECREASED [None]
  - NEUROPATHY PERIPHERAL [None]
  - PLEURAL EFFUSION [None]
  - TREMOR [None]
  - WHITE BLOOD CELL COUNT INCREASED [None]
